FAERS Safety Report 4504031-2 (Version None)
Quarter: 2004Q3

REPORT INFORMATION
  Report Type: 
  Country: None (occurrence: None)
  Receive Date: 20040927
  Receipt Date: 20040629
  Transmission Date: 20050211
  Serious: No
  Sender: FDA-Public Use
  Company Number: USA040671410

PATIENT
  Age: 7 Year
  Sex: Male
  Weight: 22 kg

DRUGS (3)
  1. STRATTERA [Suspect]
     Indication: ATTENTION DEFICIT/HYPERACTIVITY DISORDER
     Dates: start: 20040101
  2. METADATE (METHYLPHENIDATE HYDROCHLORIDE) [Concomitant]
  3. ADDERALL 5 [Concomitant]

REACTIONS (2)
  - RETCHING [None]
  - VOMITING [None]
